FAERS Safety Report 6374756-5 (Version None)
Quarter: 2009Q3

REPORT INFORMATION
  Report Type: 
  Country: None (occurrence: None)
  Receive Date: 20090924
  Receipt Date: 20090915
  Transmission Date: 20100115
  Serious: Yes (Other)
  Sender: FDA-Public Use
  Company Number: PHHY2009CA39727

PATIENT
  Sex: Female

DRUGS (2)
  1. RASILEZ [Suspect]
     Indication: HYPERTENSION
     Dosage: 150 MG, QD
  2. SPIRONOLACTONE W/ HYDROCHLOROTHIAZIDE [Suspect]

REACTIONS (3)
  - DECREASED APPETITE [None]
  - MUSCLE SPASMS [None]
  - WEIGHT DECREASED [None]
